FAERS Safety Report 8732701 (Version 3)
Quarter: 2013Q1

REPORT INFORMATION
  Report Type: Spontaneous
  Country: ZA (occurrence: ZA)
  Receive Date: 20120820
  Receipt Date: 20130125
  Transmission Date: 20140127
  Serious: Yes (Death, Hospitalization, Other)
  Sender: FDA-Public Use
  Company Number: ZA-ROCHE-1103048

PATIENT
  Sex: Female
  Weight: 92 kg

DRUGS (6)
  1. ACTEMRA [Suspect]
     Indication: RHEUMATOID ARTHRITIS
     Dosage: LAST INFUSION: 06/AUG/2012.
     Route: 042
  2. METHOTREXATE [Concomitant]
     Indication: RHEUMATOID ARTHRITIS
     Route: 065
     Dates: start: 2000
  3. FOLIC ACID [Concomitant]
     Route: 065
     Dates: start: 2000
  4. PREDNISONE [Concomitant]
     Indication: RHEUMATOID ARTHRITIS
     Route: 065
     Dates: start: 2000
  5. ASPAVOR [Concomitant]
     Indication: HYPERLIPIDAEMIA
     Route: 065
     Dates: start: 2008
  6. COXFLAM [Concomitant]
     Route: 065

REACTIONS (2)
  - Death [Fatal]
  - Myocardial infarction [Not Recovered/Not Resolved]
